FAERS Safety Report 9606961 (Version 2)
Quarter: 2013Q4

REPORT INFORMATION
  Report Type: Report from Study
  Country: JP (occurrence: JP)
  Receive Date: 20131008
  Receipt Date: 20131008
  Transmission Date: 20140711
  Serious: Yes (Hospitalization)
  Sender: FDA-Public Use
  Company Number: JP-MERCK-1203USA00357

PATIENT
  Age: 73 Year
  Sex: Male
  Weight: 54.4 kg

DRUGS (6)
  1. GLACTIV [Suspect]
     Indication: TYPE 2 DIABETES MELLITUS
     Dosage: 25 MG, QD
     Route: 048
     Dates: start: 20110124, end: 20110307
  2. GLACTIV [Suspect]
     Dosage: 50 MG, QD
     Route: 048
     Dates: start: 20110308, end: 20110620
  3. CALONAL [Concomitant]
     Dosage: 400 MG, PRN
     Dates: start: 20110210, end: 20110220
  4. CALONAL [Concomitant]
     Dosage: 400 MG, UNK
     Dates: start: 20110402, end: 20110407
  5. MEIACT [Concomitant]
     Dates: start: 20110402, end: 20110407
  6. ACTOS [Concomitant]
     Dates: start: 20110502, end: 20110620

REACTIONS (4)
  - Bladder neoplasm [Recovered/Resolved]
  - Pharyngitis [Recovered/Resolved]
  - Upper respiratory tract inflammation [Recovered/Resolved]
  - Bronchitis [Recovered/Resolved]
